FAERS Safety Report 8787024 (Version 1)
Quarter: 2012Q4

REPORT INFORMATION
  Report Type: 
  Country: US (occurrence: US)
  Receive Date: 20120914
  Receipt Date: 20120914
  Transmission Date: 20130627
  Serious: No
  Sender: FDA-Public Use
  Company Number: US-VERTEX PHARMACEUTICAL INC.-AE-2012-008739

PATIENT
  Age: 59 None
  Sex: Female
  Weight: 70 kg

DRUGS (5)
  1. INCIVEK [Suspect]
     Indication: HEPATITIS C
     Route: 048
     Dates: start: 20120611
  2. RIBAVIRIN [Concomitant]
     Indication: HEPATITIS C
     Route: 048
     Dates: start: 20120611
  3. PEGASYS [Concomitant]
     Indication: HEPATITIS C
     Route: 058
     Dates: start: 20120610
  4. PREMARIN [Concomitant]
     Indication: MENOPAUSAL SYMPTOMS
     Route: 048
  5. BLOOD PRESSURE MEDICINE [Concomitant]
     Indication: HYPERTENSION
     Route: 048

REACTIONS (21)
  - Painful defaecation [Not Recovered/Not Resolved]
  - Blood glucose increased [Not Recovered/Not Resolved]
  - Vision blurred [Recovered/Resolved]
  - Cough [Not Recovered/Not Resolved]
  - Dry skin [Not Recovered/Not Resolved]
  - Insomnia [Not Recovered/Not Resolved]
  - Pain [Not Recovered/Not Resolved]
  - Dry throat [Not Recovered/Not Resolved]
  - Lip dry [Not Recovered/Not Resolved]
  - Breath odour [Not Recovered/Not Resolved]
  - Feeling abnormal [Not Recovered/Not Resolved]
  - Skin wrinkling [Not Recovered/Not Resolved]
  - Asthenia [Not Recovered/Not Resolved]
  - Fatigue [Not Recovered/Not Resolved]
  - Anorectal discomfort [Not Recovered/Not Resolved]
  - Anal pruritus [Not Recovered/Not Resolved]
  - Haematochezia [Not Recovered/Not Resolved]
  - Diarrhoea [Not Recovered/Not Resolved]
  - Proctalgia [Unknown]
  - Dysgeusia [Not Recovered/Not Resolved]
  - Pruritus generalised [Not Recovered/Not Resolved]
